FAERS Safety Report 24615732 (Version 4)
Quarter: 2025Q2

REPORT INFORMATION
  Report Type: Spontaneous
  Country: US (occurrence: US)
  Receive Date: 20241113
  Receipt Date: 20250403
  Transmission Date: 20250716
  Serious: Yes (Other)
  Sender: SANOFI AVENTIS
  Company Number: US-SA-2024SA326201

PATIENT
  Age: 59 Year
  Sex: Female

DRUGS (3)
  1. DUPIXENT [Suspect]
     Active Substance: DUPILUMAB
     Indication: Dermatitis atopic
     Route: 058
     Dates: start: 202409, end: 202409
  2. DUPIXENT [Suspect]
     Active Substance: DUPILUMAB
     Dosage: 300 MG, QOW
     Route: 058
     Dates: start: 2024
  3. ORENCIA [Concomitant]
     Active Substance: ABATACEPT

REACTIONS (12)
  - Rheumatoid arthritis [Unknown]
  - Illness [Unknown]
  - Vulval eczema [Recovering/Resolving]
  - Dermatitis contact [Recovered/Resolved]
  - Mood disorder due to a general medical condition [Not Recovered/Not Resolved]
  - Injection site pain [Not Recovered/Not Resolved]
  - Eczema [Recovering/Resolving]
  - Skin swelling [Recovering/Resolving]
  - Erythema [Recovering/Resolving]
  - Pruritus [Recovering/Resolving]
  - Product preparation error [Unknown]
  - Product dose omission in error [Unknown]

NARRATIVE: CASE EVENT DATE: 20240101
